FAERS Safety Report 9975112 (Version 1)
Quarter: 2014Q1

REPORT INFORMATION
  Report Type: Report from Study
  Country: US (occurrence: US)
  Receive Date: 20140306
  Receipt Date: 20140306
  Transmission Date: 20141002
  Serious: No
  Sender: FDA-Public Use
  Company Number: US-ABBVIE-13P-163-1160269-00

PATIENT
  Age: 33 Year
  Sex: Female
  Weight: 45.4 kg

DRUGS (5)
  1. HUMIRA [Suspect]
     Indication: COLITIS ULCERATIVE
     Dosage: ONE DOSE
     Dates: start: 201306, end: 201306
  2. HUMIRA [Suspect]
     Dosage: TWO WEEKS AFTER 160 MG DOSE
     Dates: start: 2013, end: 2013
  3. HUMIRA [Suspect]
     Dosage: FOUR WEEKS AFTER 160 MG DOSE
     Dates: start: 2013
  4. BIRTH CONTROL PILL [Concomitant]
     Indication: CONTRACEPTION
  5. APRISO [Concomitant]
     Indication: COLITIS ULCERATIVE

REACTIONS (4)
  - Wrong technique in drug usage process [Not Recovered/Not Resolved]
  - Injection site pain [Not Recovered/Not Resolved]
  - Injection site pain [Recovered/Resolved]
  - Incorrect route of drug administration [Recovered/Resolved]
